FAERS Safety Report 18749648 (Version 1)
Quarter: 2021Q1

REPORT INFORMATION
  Report Type: Spontaneous
  Country: CH (occurrence: CH)
  Receive Date: 20210117
  Receipt Date: 20210117
  Transmission Date: 20210419
  Serious: Yes (Other)
  Sender: FDA-Public Use
  Company Number: CH-UCBSA-2021001370

PATIENT
  Age: 0 Year
  Sex: Female
  Weight: 2.28 kg

DRUGS (4)
  1. CIMZIA [Suspect]
     Active Substance: CERTOLIZUMAB PEGOL
     Dosage: 200 MILLIGRAM, EV 2 WEEKS(QOW)
     Route: 064
     Dates: start: 2020, end: 20200615
  2. SPIRICORT [Suspect]
     Active Substance: PREDNISOLONE
     Indication: CROHN^S DISEASE
     Dosage: 50 MILLIGRAM
     Route: 064
     Dates: start: 20200616
  3. SPIRICORT [Suspect]
     Active Substance: PREDNISOLONE
     Dosage: UNK
     Route: 064
     Dates: start: 2020
  4. CIMZIA [Suspect]
     Active Substance: CERTOLIZUMAB PEGOL
     Indication: CROHN^S DISEASE
     Dosage: 400 MILLIGRAM, EV 2 WEEKS(QOW)
     Route: 064
     Dates: start: 20191101

REACTIONS (3)
  - Maternal exposure before pregnancy [Unknown]
  - Foetal growth restriction [Recovered/Resolved]
  - Low birth weight baby [Unknown]

NARRATIVE: CASE EVENT DATE: 2020
